FAERS Safety Report 6880137-8 (Version None)
Quarter: 2010Q3

REPORT INFORMATION
  Report Type: 
  Country: None (occurrence: None)
  Receive Date: 20100728
  Receipt Date: 20100112
  Transmission Date: 20110219
  Serious: Yes (Death, Hospitalization)
  Sender: FDA-Public Use
  Company Number: US-BRISTOL-MYERS SQUIBB COMPANY-14920292

PATIENT
  Age: 41 Year
  Sex: Male
  Weight: 70 kg

DRUGS (6)
  1. DASATINIB [Suspect]
     Indication: MALIGNANT NEOPLASM OF PLEURA
     Dosage: BATCH NOS 5M042442/348033, 5M04242/35/653
     Route: 048
     Dates: start: 20071120, end: 20090624
  2. DASATINIB [Suspect]
     Indication: METASTATIC NEOPLASM
     Dosage: BATCH NOS 5M042442/348033, 5M04242/35/653
     Route: 048
     Dates: start: 20071120, end: 20090624
  3. MORPHINE [Concomitant]
     Dosage: ALSO RECEIVED 15 MG EVERY 12 HOURS ALSO GIVEN IV DRIP
     Route: 048
  4. MEGACE [Concomitant]
     Route: 048
  5. CELEXA [Concomitant]
     Route: 048
  6. AMBIEN [Concomitant]

REACTIONS (2)
  - MALIGNANT NEOPLASM PROGRESSION [None]
  - PNEUMONIA [None]
